FAERS Safety Report 10441694 (Version 2)
Quarter: 2015Q3

REPORT INFORMATION
  Report Type: Spontaneous
  Country: US (occurrence: US)
  Receive Date: 20140908
  Receipt Date: 20150818
  Transmission Date: 20151125
  Serious: No
  Sender: FDA-Public Use
  Company Number: US-GILEAD-2014-0114352

PATIENT
  Age: 60 Year
  Sex: Female

DRUGS (19)
  1. LETAIRIS [Suspect]
     Active Substance: AMBRISENTAN
     Indication: RHEUMATOID ARTHRITIS
     Route: 065
     Dates: start: 20110808, end: 20140813
  2. NASACORT AQ [Concomitant]
     Active Substance: TRIAMCINOLONE ACETONIDE
  3. SYNTHROID [Concomitant]
     Active Substance: LEVOTHYROXINE SODIUM
  4. LIPITOR [Concomitant]
     Active Substance: ATORVASTATIN CALCIUM
  5. REVATIO [Concomitant]
     Active Substance: SILDENAFIL CITRATE
  6. AMBIEN [Concomitant]
     Active Substance: ZOLPIDEM TARTRATE
  7. PLAVIX [Concomitant]
     Active Substance: CLOPIDOGREL BISULFATE
  8. CARVEDILOL. [Concomitant]
     Active Substance: CARVEDILOL
  9. NEXIUM [Concomitant]
     Active Substance: ESOMEPRAZOLE MAGNESIUM
  10. NOVOLOG [Concomitant]
     Active Substance: INSULIN ASPART
  11. XANAX [Concomitant]
     Active Substance: ALPRAZOLAM
  12. HUMIRA [Concomitant]
     Active Substance: ADALIMUMAB
  13. LOMOTIL [Concomitant]
     Active Substance: ATROPINE SULFATE\DIPHENOXYLATE HYDROCHLORIDE
  14. CLOPIDOGREL [Concomitant]
     Active Substance: CLOPIDOGREL BISULFATE
  15. LUNESTA [Concomitant]
     Active Substance: ESZOPICLONE
  16. GLUCOPHAGE [Concomitant]
     Active Substance: METFORMIN HYDROCHLORIDE
  17. LASIX [Concomitant]
     Active Substance: FUROSEMIDE
  18. FOLIC ACID. [Concomitant]
     Active Substance: FOLIC ACID
  19. VICODIN [Concomitant]
     Active Substance: ACETAMINOPHEN\HYDROCODONE BITARTRATE

REACTIONS (1)
  - Nasal congestion [Recovered/Resolved]

NARRATIVE: CASE EVENT DATE: 20110830
